FAERS Safety Report 9822048 (Version 1)
Quarter: 2014Q1

REPORT INFORMATION
  Report Type: Spontaneous
  Country: IR (occurrence: IR)
  Receive Date: 20140116
  Receipt Date: 20140116
  Transmission Date: 20141002
  Serious: Yes (Other)
  Sender: FDA-Public Use
  Company Number: IR-SA-2014SA003889

PATIENT
  Age: 27 Year
  Sex: Male

DRUGS (4)
  1. ZOLPIDEM [Suspect]
     Indication: DRUG ABUSE
     Dosage: 5-15 MG PRN DURING LAST YEAR
     Route: 065
  2. ZOLPIDEM [Suspect]
     Indication: SUICIDE ATTEMPT
     Dosage: 5-15 MG PRN DURING LAST YEAR
     Route: 065
  3. ZOLPIDEM [Suspect]
     Indication: DRUG ABUSE
     Dosage: 6 PILLS
     Route: 065
  4. ZOLPIDEM [Suspect]
     Indication: SUICIDE ATTEMPT
     Dosage: 6 PILLS
     Route: 065

REACTIONS (17)
  - Suicide attempt [Recovering/Resolving]
  - Drug abuse [Unknown]
  - Overdose [Unknown]
  - Skin odour abnormal [Unknown]
  - Seborrhoea [Unknown]
  - Dysgeusia [Unknown]
  - Logorrhoea [Unknown]
  - Skin discolouration [Unknown]
  - Nausea [Unknown]
  - Vomiting [Unknown]
  - Insomnia [Unknown]
  - Nightmare [Unknown]
  - Dizziness [Unknown]
  - Headache [Unknown]
  - Abdominal pain [Unknown]
  - Hallucination, visual [Unknown]
  - Body temperature increased [Unknown]
